FAERS Safety Report 8027010-X (Version None)
Quarter: 2011Q4

REPORT INFORMATION
  Report Type: 
  Country: None (occurrence: None)
  Receive Date: 20111130
  Receipt Date: 20110725
  Transmission Date: 20120403
  Serious: Yes (Hospitalization, Other)
  Sender: FDA-Public Use
  Company Number: US201008003480

PATIENT
  Age: 71 Year
  Sex: Female

DRUGS (11)
  1. SYMBICORT [Concomitant]
  2. OXYCODONE HCL [Concomitant]
  3. LASIX [Concomitant]
  4. METFORMIN HCL [Concomitant]
  5. VERAPAMIL [Concomitant]
  6. BENICAR [Concomitant]
  7. PREVACID [Concomitant]
  8. BYETTA [Suspect]
     Indication: TYPE 2 DIABETES MELLITUS
     Dosage: 5 UG, BID ; 10 UG, BID, SUBCUTANEOUS
     Route: 058
     Dates: end: 20090401
  9. BYETTA [Suspect]
     Indication: TYPE 2 DIABETES MELLITUS
     Dosage: 5 UG, BID ; 10 UG, BID, SUBCUTANEOUS
     Route: 058
     Dates: end: 20070727
  10. CALCIUM + VITAMIN D (CALCIUM, COLECALCIFEROL) [Concomitant]
  11. VYTORIN [Concomitant]

REACTIONS (1)
  - PANCREATITIS ACUTE [None]
